FAERS Safety Report 8173722-7 (Version None)
Quarter: 2012Q1

REPORT INFORMATION
  Report Type: 
  Country: None (occurrence: None)
  Receive Date: 20120227
  Receipt Date: 20120209
  Transmission Date: 20120608
  Serious: Yes (Hospitalization)
  Sender: FDA-Public Use
  Company Number: UK_TT_12_00003

PATIENT
  Sex: Female

DRUGS (5)
  1. ACETAMINOPHEN AND CODEINE PHOSPHATE [Concomitant]
  2. HYDROCORTISONE [Concomitant]
  3. DEXRAZOXANE HYDROCHLORIDE [Suspect]
     Indication: EXTRAVASATION
     Dosage: 1900 MG, DAY AND 2 IV, 950 MG DAY 3 IV
     Route: 042
     Dates: start: 20110823
  4. DEXRAZOXANE HYDROCHLORIDE [Suspect]
     Indication: EXTRAVASATION
     Dosage: 1900 MG, DAY AND 2 IV, 950 MG DAY 3 IV
     Route: 042
     Dates: start: 20110825
  5. DEXRAZOXANE HYDROCHLORIDE [Suspect]
     Indication: EXTRAVASATION
     Dosage: 1900 MG, DAY AND 2 IV, 950 MG DAY 3 IV
     Route: 042
     Dates: start: 20110824

REACTIONS (7)
  - DRUG INEFFECTIVE [None]
  - BLISTER [None]
  - OEDEMA [None]
  - NECROSIS [None]
  - SKIN GRAFT [None]
  - INFECTION [None]
  - PAIN [None]
